FAERS Safety Report 7074617 (Version 3)
Quarter: 2014Q3

REPORT INFORMATION
  Report Type: Spontaneous
  Country: FR (occurrence: FR)
  Receive Date: 20090806
  Receipt Date: 20140915
  Transmission Date: 20150326
  Serious: Yes (Life-Threatening, Hospitalization, Other)
  Sender: FDA-Public Use
  Company Number: FR-GILEAD-2009-0023412

PATIENT
  Age: 37 Year
  Sex: Female

DRUGS (16)
  1. TRUVADA [Suspect]
     Active Substance: EMTRICITABINE\TENOFOVIR DISOPROXIL FUMARATE
     Indication: HIV INFECTION
     Dosage: 1 DF, QD
     Route: 048
     Dates: start: 20090503, end: 20090516
  2. MOXIFLOXACIN HYDROCHLORIDE. [Suspect]
     Active Substance: MOXIFLOXACIN HYDROCHLORIDE
     Indication: PRODUCT USED FOR UNKNOWN INDICATION
     Dosage: UNK
     Route: 065
     Dates: start: 20090525
  3. MYAMBUTOL [Suspect]
     Active Substance: ETHAMBUTOL HYDROCHLORIDE
     Indication: TUBERCULOSIS
     Dosage: 3 DF, TID
     Route: 048
     Dates: start: 20090425, end: 20090516
  4. MYAMBUTOL [Suspect]
     Active Substance: ETHAMBUTOL HYDROCHLORIDE
     Dosage: UNK
     Route: 048
     Dates: start: 20090525
  5. RIFADINE [Suspect]
     Active Substance: RIFAMPIN
     Indication: TUBERCULOSIS
     Dosage: 300 MG, QD
     Route: 048
     Dates: start: 20090503, end: 20090516
  6. RIMIFON [Suspect]
     Active Substance: ISONIAZID
     Indication: TUBERCULOSIS
     Dosage: 150 MG, BID
     Route: 048
     Dates: start: 20090425, end: 20090516
  7. BACTRIM [Suspect]
     Active Substance: SULFAMETHOXAZOLE\TRIMETHOPRIM
     Indication: TOXOPLASMOSIS
     Dosage: 1 DF, QD
     Route: 048
     Dates: start: 20090425, end: 20090516
  8. BACTRIM [Suspect]
     Active Substance: SULFAMETHOXAZOLE\TRIMETHOPRIM
     Indication: ANTIFUNGAL PROPHYLAXIS
  9. SUSTIVA [Suspect]
     Active Substance: EFAVIRENZ
     Indication: HIV INFECTION
     Dosage: 600 MG, QD
     Route: 048
     Dates: start: 20090503, end: 20090516
  10. RIFADINE [Suspect]
     Active Substance: RIFAMPIN
     Dosage: UNK
     Dates: start: 20090525
  11. PIRILENE [Suspect]
     Active Substance: PYRAZINAMIDE
     Indication: TUBERCULOSIS
     Dosage: 500 MG, TID
     Route: 048
     Dates: start: 20090425, end: 20090516
  12. SINGULAIR [Suspect]
     Active Substance: MONTELUKAST SODIUM
     Indication: IMMUNE RECONSTITUTION INFLAMMATORY SYNDROME
     Dosage: 10 MG, QD
     Route: 048
     Dates: start: 20090511, end: 20090516
  13. IMOVANE [Suspect]
     Active Substance: ZOPICLONE
     Indication: INSOMNIA
     Route: 048
     Dates: start: 20090427, end: 20090516
  14. FUZEON [Suspect]
     Active Substance: ENFUVIRTIDE
     Indication: HIV INFECTION
     Dosage: 1 DF, QD
     Route: 058
     Dates: start: 20090503, end: 20090517
  15. ANSATIPINE [Concomitant]
     Active Substance: RIFABUTIN
     Indication: TUBERCULOSIS
     Dosage: 150 MG, QD
     Dates: start: 20090423, end: 20090503
  16. ZECLAR [Concomitant]
     Active Substance: CLARITHROMYCIN
     Indication: TUBERCULOSIS
     Dosage: UNK
     Dates: start: 20090423, end: 20090503

REACTIONS (4)
  - Hepatitis fulminant [Recovered/Resolved]
  - Immune reconstitution inflammatory syndrome [Unknown]
  - Cholangitis [Unknown]
  - Granulomatous liver disease [Unknown]

NARRATIVE: CASE EVENT DATE: 20090510
